FAERS Safety Report 8163319-7 (Version None)
Quarter: 2012Q1

REPORT INFORMATION
  Report Type: 
  Country: None (occurrence: None)
  Receive Date: 20120224
  Receipt Date: 20110317
  Transmission Date: 20120608
  Serious: No
  Sender: FDA-Public Use
  Company Number: US-PFIZER INC-K201100299

PATIENT
  Age: 68 Year
  Sex: Female
  Weight: 85.714 kg

DRUGS (5)
  1. FLECTOR [Suspect]
     Indication: MUSCLE SPASMS
     Dosage: 1 PATCH, SINGLE
     Route: 061
     Dates: start: 20110301, end: 20110301
  2. TYLENOL W/ CODEINE [Concomitant]
     Indication: MUSCLE SPASMS
     Dosage: UNK
     Route: 048
  3. GLYBURIDE [Concomitant]
     Indication: DIABETES MELLITUS
     Dosage: UNK
     Route: 048
  4. METFORMIN [Concomitant]
     Indication: DIABETES MELLITUS
     Dosage: UNK
     Route: 048
  5. IBUPROFEN [Concomitant]
     Indication: MUSCLE SPASMS
     Dosage: UNK
     Route: 048

REACTIONS (3)
  - EYE PAIN [None]
  - HYPOAESTHESIA ORAL [None]
  - PALPITATIONS [None]
